FAERS Safety Report 6802692-6 (Version None)
Quarter: 2010Q2

REPORT INFORMATION
  Report Type: 
  Country: None (occurrence: None)
  Receive Date: 20100628
  Receipt Date: 20100623
  Transmission Date: 20101027
  Serious: Yes (Hospitalization)
  Sender: FDA-Public Use
  Company Number: GB-WYE-G06309010

PATIENT
  Age: 76 Year
  Sex: Female

DRUGS (11)
  1. IBUPROFEN [Suspect]
     Indication: PAIN
     Route: 048
  2. CIMETIDINE [Concomitant]
     Dosage: UNKNOWN
  3. AMILORIDE HYDROCHLORIDE AND HYDROCHLOROTHIAZIDE [Concomitant]
     Dosage: UNKNOWN
  4. FOLIC ACID [Concomitant]
     Dosage: UNKNOWN
  5. VITAMIN B [Concomitant]
     Dosage: UNKNOWN
  6. NICOTINAMIDE [Concomitant]
     Dosage: UNKNOWN
  7. OXYBUTYNIN CHLORIDE [Concomitant]
     Dosage: UNKNOWN
  8. PERINDOPRIL [Concomitant]
     Dosage: UNKNOWN
  9. THEOPHYLLINE [Concomitant]
     Dosage: UNKNOWN
  10. SLOW-K [Suspect]
     Indication: HYPOKALAEMIA
     Route: 048
  11. LOPERAMIDE [Concomitant]
     Dosage: UNKNOWN

REACTIONS (8)
  - ABDOMINAL PAIN [None]
  - ATRIAL FIBRILLATION [None]
  - DIARRHOEA [None]
  - DYSPEPSIA [None]
  - HYPOTENSION [None]
  - MELAENA [None]
  - UPPER GASTROINTESTINAL HAEMORRHAGE [None]
  - VOMITING [None]
